FAERS Safety Report 23724488 (Version 1)
Quarter: 2024Q2

REPORT INFORMATION
  Report Type: Spontaneous
  Country: US (occurrence: US)
  Receive Date: 20240409
  Receipt Date: 20240409
  Transmission Date: 20240716
  Serious: No
  Sender: FDA-Public Use
  Company Number: US-FOUNDATIONCONSUMERHC-2023-US-027465

PATIENT
  Age: 37 Year
  Sex: Female
  Weight: 54.43 kg

DRUGS (10)
  1. PLAN B ONE-STEP [Suspect]
     Active Substance: LEVONORGESTREL
     Indication: Post coital contraception
     Dosage: 1.5 MG TABLET
     Route: 048
     Dates: start: 20230821, end: 20230821
  2. VITAMIN C [Concomitant]
     Active Substance: ASCORBIC ACID
  3. SYNTHROID [Concomitant]
     Active Substance: LEVOTHYROXINE SODIUM
     Dosage: 75 MCG
  4. TRINTELLIX [Concomitant]
     Active Substance: VORTIOXETINE HYDROBROMIDE
  5. WELLBUTRIN XL [Concomitant]
     Active Substance: BUPROPION HYDROCHLORIDE
     Dosage: 300 MG
  6. KLONOPIN [Concomitant]
     Active Substance: CLONAZEPAM
     Dosage: 05. MG
  7. MONTELUKAST [Concomitant]
     Active Substance: MONTELUKAST SODIUM
  8. ZYRTEC [Concomitant]
     Active Substance: CETIRIZINE HYDROCHLORIDE
  9. VITAMINS [Concomitant]
     Active Substance: VITAMINS
  10. VITAMIN D [Concomitant]
     Active Substance: VITAMIN D NOS

REACTIONS (4)
  - Vaginal haemorrhage [Recovered/Resolved]
  - Abnormal menstrual clots [Recovered/Resolved]
  - Dysmenorrhoea [Recovered/Resolved]
  - Vaginal haemorrhage [Not Recovered/Not Resolved]

NARRATIVE: CASE EVENT DATE: 20230826
